FAERS Safety Report 20994146 (Version 1)
Quarter: 2022Q2

REPORT INFORMATION
  Report Type: Spontaneous
  Country: US (occurrence: US)
  Receive Date: 20220622
  Receipt Date: 20220622
  Transmission Date: 20220721
  Serious: Yes (Other)
  Sender: FDA-Public Use
  Company Number: US-MYLANLABS-2022M1046423

PATIENT
  Age: 35 Month
  Sex: Female

DRUGS (2)
  1. TACROLIMUS [Suspect]
     Active Substance: TACROLIMUS
     Indication: Nephrotic syndrome
     Dosage: LOW DOSE WAS INITIATED
     Dates: start: 20190820
  2. TACROLIMUS [Suspect]
     Active Substance: TACROLIMUS
     Dosage: AFTER DOSE INCREASE DYSTONIC REACTION OCCURRED
     Dates: end: 2020

REACTIONS (2)
  - Dystonia [Recovered/Resolved]
  - Off label use [Unknown]

NARRATIVE: CASE EVENT DATE: 20201126
